FAERS Safety Report 5586155-4 (Version None)
Quarter: 2008Q1

REPORT INFORMATION
  Report Type: 
  Country: None (occurrence: None)
  Receive Date: 20080104
  Receipt Date: 20071220
  Transmission Date: 20080703
  Serious: Yes (Hospitalization)
  Sender: FDA-Public Use
  Company Number: CIP07002715

PATIENT
  Age: 75 Year
  Sex: Female

DRUGS (8)
  1. ACTONEL [Suspect]
     Indication: OSTEOPOROSIS
     Dosage: 2.5 MG DAILY, ORAL
     Route: 048
     Dates: start: 20070305
  2. LOXONIN /00890701/ (LOXOPROFEN) [Concomitant]
  3. MYONAL /00287502/ (EPIRIZOLE HYDROCHLORIDE) [Concomitant]
  4. ETODOLAC [Concomitant]
  5. NEUROTROPIN /00049301/ (SMALLPOX VACCINE) [Concomitant]
  6. MAGMITT (MAGNESIUM OXIDE) [Concomitant]
  7. LANSOPRAZOLE [Concomitant]
  8. GASTROM (ECABET MONOSODIUM) [Concomitant]

REACTIONS (3)
  - CONDITION AGGRAVATED [None]
  - HEPATIC FUNCTION ABNORMAL [None]
  - HYPERKALAEMIA [None]
